FAERS Safety Report 6341752-3 (Version None)
Quarter: 2009Q3

REPORT INFORMATION
  Report Type: 
  Country: None (occurrence: None)
  Receive Date: 20090904
  Receipt Date: 20090901
  Transmission Date: 20100115
  Serious: Yes (Other)
  Sender: FDA-Public Use
  Company Number: PHHY2009NO37280

PATIENT
  Age: 59 Year
  Sex: Female

DRUGS (1)
  1. VOLTAREN [Suspect]

REACTIONS (1)
  - PETIT MAL EPILEPSY [None]
